FAERS Safety Report 7830330-2 (Version None)
Quarter: 2011Q4

REPORT INFORMATION
  Report Type: 
  Country: None (occurrence: None)
  Receive Date: 20111021
  Receipt Date: 20111019
  Transmission Date: 20120403
  Serious: Yes (Hospitalization)
  Sender: FDA-Public Use
  Company Number: IT-PFIZER INC-2006129471

PATIENT
  Age: 60 Year
  Sex: Female
  Weight: 58 kg

DRUGS (1)
  1. SUNITINIB MALATE [Suspect]
     Indication: GASTROINTESTINAL STROMAL TUMOUR
     Dosage: 50 MG, 1X/DAY
     Route: 048
     Dates: start: 20061006, end: 20061016

REACTIONS (3)
  - VOMITING [None]
  - CONFUSIONAL STATE [None]
  - DEHYDRATION [None]
